FAERS Safety Report 4801300-3 (Version None)
Quarter: 2005Q4

REPORT INFORMATION
  Report Type: 
  Country: None (occurrence: None)
  Receive Date: 20051012
  Receipt Date: 20050926
  Transmission Date: 20060501
  Serious: Yes (Death)
  Sender: FDA-Public Use
  Company Number: 8012476

PATIENT
  Sex: Male

DRUGS (4)
  1. KEPPRA [Suspect]
     Dosage: 250 MG /D
     Dates: start: 20050617, end: 20050629
  2. KEPPRA [Suspect]
     Dosage: 500 MG/2D
     Dates: start: 20050630, end: 20050826
  3. CARBAMAZEPINE [Suspect]
  4. PHENYTOIN [Suspect]

REACTIONS (1)
  - CONVULSION [None]
